FAERS Safety Report 4696017-2 (Version None)
Quarter: 2005Q2

REPORT INFORMATION
  Report Type: 
  Country: None (occurrence: None)
  Receive Date: 20050621
  Receipt Date: 20050505
  Transmission Date: 20051028
  Serious: Yes (Hospitalization)
  Sender: FDA-Public Use
  Company Number: B0380949

PATIENT
  Age: 73 Year
  Sex: Female

DRUGS (4)
  1. SPEKTRAMOX [Suspect]
     Dates: start: 20050101, end: 20050101
  2. BRICANYL [Concomitant]
     Route: 065
  3. LEVAXIN [Concomitant]
  4. PULMICORT [Concomitant]
     Route: 065

REACTIONS (7)
  - ABDOMINAL PAIN [None]
  - BLOOD BILIRUBIN INCREASED [None]
  - CHROMATURIA [None]
  - FAECES PALE [None]
  - NAUSEA [None]
  - TRANSAMINASES INCREASED [None]
  - URINE ODOUR ABNORMAL [None]
